FAERS Safety Report 14948884 (Version 1)
Quarter: 2018Q2

REPORT INFORMATION
  Report Type: Spontaneous
  Country: ES (occurrence: ES)
  Receive Date: 20180529
  Receipt Date: 20180529
  Transmission Date: 20180711
  Serious: Yes (Other)
  Sender: FDA-Public Use
  Company Number: ES-GLAXOSMITHKLINE-ES2018GSK094418

PATIENT
  Age: 29 Year
  Sex: Female

DRUGS (1)
  1. NUCALA [Suspect]
     Active Substance: MEPOLIZUMAB
     Indication: ASTHMA
     Dosage: UNK UNK, CYC
     Route: 058
     Dates: start: 201710

REACTIONS (4)
  - Urinary retention [Unknown]
  - Chest pain [Recovered/Resolved]
  - Musculoskeletal discomfort [Recovered/Resolved]
  - Neurogenic bladder [Not Recovered/Not Resolved]

NARRATIVE: CASE EVENT DATE: 201805
